FAERS Safety Report 23657360 (Version 1)
Quarter: 2024Q1

REPORT INFORMATION
  Report Type: Spontaneous
  Country: CN (occurrence: CN)
  Receive Date: 20240321
  Receipt Date: 20240321
  Transmission Date: 20240410
  Serious: Yes (Other)
  Sender: FDA-Public Use
  Company Number: CN-JNJFOC-20240340841

PATIENT
  Age: 58 Year
  Sex: Male
  Weight: 62.5 kg

DRUGS (5)
  1. DARZALEX [Suspect]
     Active Substance: DARATUMUMAB
     Indication: Transplant dysfunction
     Route: 041
  2. DARZALEX [Suspect]
     Active Substance: DARATUMUMAB
     Indication: Chronic kidney disease
     Route: 041
     Dates: start: 20240311, end: 20240311
  3. DARZALEX [Suspect]
     Active Substance: DARATUMUMAB
     Indication: Kidney transplant rejection
  4. DARZALEX [Suspect]
     Active Substance: DARATUMUMAB
     Indication: Renal transplant
  5. DARZALEX [Suspect]
     Active Substance: DARATUMUMAB
     Indication: Transplant rejection

REACTIONS (6)
  - Neuralgia [Recovering/Resolving]
  - Infusion related reaction [Recovering/Resolving]
  - Headache [Recovered/Resolved]
  - Back pain [Recovered/Resolved]
  - Abdominal pain lower [Recovered/Resolved]
  - Off label use [Unknown]

NARRATIVE: CASE EVENT DATE: 20240311
